FAERS Safety Report 8276015-2 (Version None)
Quarter: 2012Q2

REPORT INFORMATION
  Report Type: 
  Country: None (occurrence: None)
  Receive Date: 20120412
  Receipt Date: 20120404
  Transmission Date: 20120825
  Serious: Yes (Other)
  Sender: FDA-Public Use
  Company Number: JP-JNJFOC-20120403509

PATIENT

DRUGS (2)
  1. RISPERDAL [Suspect]
     Indication: ACCIDENTAL EXPOSURE
     Route: 048
  2. UNKNOWN ANTIPSYCHOTIC [Suspect]
     Indication: ACCIDENTAL EXPOSURE
     Route: 065

REACTIONS (2)
  - SOMNOLENCE [None]
  - MULTIPLE DRUG OVERDOSE ACCIDENTAL [None]
